FAERS Safety Report 10396847 (Version 1)
Quarter: 2014Q3

REPORT INFORMATION
  Report Type: Spontaneous
  Country: US (occurrence: US)
  Receive Date: 20140820
  Receipt Date: 20140820
  Transmission Date: 20150326
  Serious: Yes (Death, Hospitalization, Other)
  Sender: FDA-Public Use
  Company Number: US-B.I. PHARMACEUTICALS,INC./RIDGEFIELD-2014-BI-37707BP

PATIENT
  Age: 59 Year
  Sex: Male

DRUGS (1)
  1. PRADAXA [Suspect]
     Active Substance: DABIGATRAN ETEXILATE MESYLATE
     Indication: THROMBOSIS PROPHYLAXIS
     Dosage: 300 MG
     Route: 048
     Dates: start: 20140219, end: 20140319

REACTIONS (5)
  - Atrial fibrillation [Fatal]
  - Anaemia [Unknown]
  - Upper gastrointestinal haemorrhage [Fatal]
  - Acute respiratory failure [Unknown]
  - Haematuria [Unknown]

NARRATIVE: CASE EVENT DATE: 20140318
